FAERS Safety Report 17456750 (Version 2)
Quarter: 2020Q1

REPORT INFORMATION
  Report Type: Spontaneous
  Country: NO (occurrence: NO)
  Receive Date: 20200225
  Receipt Date: 20200317
  Transmission Date: 20200409
  Serious: Yes (Death, Other)
  Sender: FDA-Public Use
  Company Number: NO-RARE DISEASE THERAPEUTICS, INC.-2080869

PATIENT
  Age: 46 Year
  Sex: Male

DRUGS (14)
  1. TIOGUANINE [Suspect]
     Active Substance: THIOGUANINE ANHYDROUS
  2. CYTARABINE. [Suspect]
     Active Substance: CYTARABINE
  3. METHOTREXATE (METHOTREXATE SODIUM) [Suspect]
     Active Substance: METHOTREXATE SODIUM
     Route: 037
  4. FILGRASTIM [Suspect]
     Active Substance: FILGRASTIM
  5. PURIXAN [Suspect]
     Active Substance: MERCAPTOPURINE
     Indication: PRECURSOR T-LYMPHOBLASTIC LYMPHOMA/LEUKAEMIA
     Route: 042
  6. DAUNORUBICIN [Suspect]
     Active Substance: DAUNORUBICIN
     Route: 042
  7. VINCRISTINE SULFATE. [Suspect]
     Active Substance: VINCRISTINE SULFATE
     Route: 042
  8. DOXORUBICIN HYDROCHLORIDE. [Suspect]
     Active Substance: DOXORUBICIN HYDROCHLORIDE
  9. PREDNISOLONE. [Suspect]
     Active Substance: PREDNISOLONE
     Route: 048
  10. PREDNISOLONE. [Suspect]
     Active Substance: PREDNISOLONE
  11. ASPARAGINASE [Suspect]
     Active Substance: ASPARAGINASE
  12. METHOTREXATE. [Suspect]
     Active Substance: METHOTREXATE
  13. CYCLOPHOSPHAMIDE. [Suspect]
     Active Substance: CYCLOPHOSPHAMIDE
  14. CYTARABINE. [Suspect]
     Active Substance: CYTARABINE
     Route: 037

REACTIONS (6)
  - Febrile neutropenia [Unknown]
  - Venoocclusive disease [Fatal]
  - Haematotoxicity [Unknown]
  - Off label use [None]
  - Product use issue [None]
  - Multiple organ dysfunction syndrome [Fatal]
